FAERS Safety Report 22100913 (Version 1)
Quarter: 2023Q1

REPORT INFORMATION
  Report Type: Spontaneous
  Country: US (occurrence: US)
  Receive Date: 20230316
  Receipt Date: 20230316
  Transmission Date: 20230418
  Serious: No
  Sender: FDA-Public Use
  Company Number: US-AMGEN-USASP2023043492

PATIENT
  Sex: Male

DRUGS (7)
  1. XGEVA [Suspect]
     Active Substance: DENOSUMAB
     Indication: Prostate cancer
     Dosage: 120 MILLIGRAM, Q3MO
     Route: 065
  2. XGEVA [Suspect]
     Active Substance: DENOSUMAB
     Indication: Metastases to bone
  3. ORGOVYX [Concomitant]
     Active Substance: RELUGOLIX
     Dosage: 100 MILLIGRAM, QOD
  4. LYNPARZA [Concomitant]
     Active Substance: OLAPARIB
     Dosage: 50 MILLIGRAM, BID, WAS ON A CYCLE TAKING FOR 5 DAYS AND OFF FOR 16 DAYS
  5. VITAMINS [Concomitant]
     Active Substance: VITAMINS
  6. Pumpkin seed oil [Concomitant]
  7. IRON [Concomitant]
     Active Substance: IRON

REACTIONS (9)
  - Bone pain [Not Recovered/Not Resolved]
  - Arthralgia [Not Recovered/Not Resolved]
  - Musculoskeletal pain [Not Recovered/Not Resolved]
  - Pain [Not Recovered/Not Resolved]
  - Pain in extremity [Not Recovered/Not Resolved]
  - Paraesthesia [Not Recovered/Not Resolved]
  - Sleep disorder due to a general medical condition [Not Recovered/Not Resolved]
  - Musculoskeletal stiffness [Recovered/Resolved]
  - Off label use [Unknown]
